FAERS Safety Report 4634606-1 (Version None)
Quarter: 2005Q2

REPORT INFORMATION
  Report Type: 
  Country: None (occurrence: None)
  Receive Date: 20050413
  Receipt Date: 20050407
  Transmission Date: 20051028
  Serious: Yes (Hospitalization)
  Sender: FDA-Public Use
  Company Number: J081-002-001925

PATIENT
  Age: 86 Year
  Sex: Female

DRUGS (8)
  1. ARICEPT [Suspect]
     Indication: DEMENTIA ALZHEIMER'S TYPE
     Dosage: 3 MG, 1 IN 1 D, ORAL
     Route: 048
     Dates: start: 20050114, end: 20050126
  2. NORVASC [Concomitant]
  3. TRANDOLAPRIL (TRANDOLAPRIL) [Concomitant]
  4. PLETAL [Concomitant]
  5. OSTEN (IPRIFLAVONE) [Concomitant]
  6. MARZULENE (AZULENE) [Concomitant]
  7. LOCHOL (FLUVASTATIN SODIUM) [Concomitant]
  8. FENILENE (FERROUS CITRATE) [Concomitant]

REACTIONS (2)
  - HYPOGLYCAEMIA [None]
  - NAUSEA [None]
